FAERS Safety Report 6770193-X (Version None)
Quarter: 2010Q2

REPORT INFORMATION
  Report Type: 
  Country: None (occurrence: None)
  Receive Date: 20100615
  Receipt Date: 20100602
  Transmission Date: 20101027
  Serious: Yes (Other)
  Sender: FDA-Public Use
  Company Number: US-ELI_LILLY_AND_COMPANY-US201006001642

PATIENT
  Sex: Male

DRUGS (2)
  1. ZYPREXA [Suspect]
     Dosage: UNK, UNKNOWN
     Route: 065
  2. GEODON [Concomitant]

REACTIONS (3)
  - ABNORMAL BEHAVIOUR [None]
  - ALCOHOL POISONING [None]
  - SCHIZOPHRENIA [None]
